FAERS Safety Report 20244086 (Version 1)
Quarter: 2021Q4

REPORT INFORMATION
  Report Type: Spontaneous
  Country: US (occurrence: US)
  Receive Date: 20211229
  Receipt Date: 20211229
  Transmission Date: 20220303
  Serious: Yes (Other)
  Sender: FDA-Public Use
  Company Number: US-COOPERSURGICAL, INC.-US-2021CPS002417

PATIENT
  Sex: Female
  Weight: 57.596 kg

DRUGS (1)
  1. PARAGARD T 380A [Suspect]
     Active Substance: COPPER
     Indication: Contraception
     Dosage: UNK
     Route: 015
     Dates: start: 20210611, end: 20210802

REACTIONS (8)
  - Embedded device [Recovered/Resolved]
  - Procedural pain [Recovered/Resolved]
  - Procedural haemorrhage [Unknown]
  - Device allergy [Unknown]
  - Device dislocation [Recovered/Resolved]
  - Abnormal uterine bleeding [Recovered/Resolved]
  - Off label use [Unknown]
  - Urticaria [Unknown]

NARRATIVE: CASE EVENT DATE: 20210101
